FAERS Safety Report 18542182 (Version 1)
Quarter: 2020Q4

REPORT INFORMATION
  Report Type: Spontaneous
  Country: US (occurrence: US)
  Receive Date: 20201125
  Receipt Date: 20201125
  Transmission Date: 20210114
  Serious: Yes (Other)
  Sender: FDA-Public Use
  Company Number: US-GLAND PHARMA LIMITED-2020US007484

PATIENT
  Age: 51 Year
  Sex: Female

DRUGS (2)
  1. CARBOPLATIN. [Suspect]
     Active Substance: CARBOPLATIN
     Indication: UTERINE CANCER
     Dosage: AUC 5 EVERY 3 WEEKS
     Route: 065
  2. PACLITAXEL. [Suspect]
     Active Substance: PACLITAXEL
     Indication: UTERINE CANCER
     Dosage: 175 MG/M2, EVERY 3 WEEKS
     Route: 065

REACTIONS (2)
  - Photopsia [Unknown]
  - Scintillating scotoma [Unknown]
